FAERS Safety Report 5136317-5 (Version None)
Quarter: 2006Q4

REPORT INFORMATION
  Report Type: 
  Country: None (occurrence: None)
  Receive Date: 20061027
  Receipt Date: 20061019
  Transmission Date: 20070319
  Serious: Yes (Death)
  Sender: FDA-Public Use
  Company Number: FR-GLAXOSMITHKLINE-B0443742A

PATIENT

DRUGS (1)
  1. ZELITREX [Suspect]
     Route: 048
     Dates: start: 20020101

REACTIONS (5)
  - COORDINATION ABNORMAL [None]
  - DEATH [None]
  - DYSARTHRIA [None]
  - NERVOUS SYSTEM DISORDER [None]
  - OVERDOSE [None]
